FAERS Safety Report 14021868 (Version 4)
Quarter: 2018Q2

REPORT INFORMATION
  Report Type: Report from Study
  Country: US (occurrence: US)
  Receive Date: 20170928
  Receipt Date: 20180628
  Transmission Date: 20180711
  Serious: No
  Sender: FDA-Public Use
  Company Number: US-CLOVIS ONCOLOGY-CLO-2017-001070

PATIENT
  Sex: Female
  Weight: 57 kg

DRUGS (10)
  1. CITRUS [Concomitant]
     Indication: PRODUCT USED FOR UNKNOWN INDICATION
     Dosage: 600 MG, BID
     Route: 048
     Dates: start: 20170719
  2. GINKO                              /01003101/ [Concomitant]
     Active Substance: GINKGO
     Indication: PRODUCT USED FOR UNKNOWN INDICATION
  3. RUBRACA [Suspect]
     Active Substance: RUCAPARIB CAMSYLATE
     Indication: OVARIAN CANCER
     Dosage: 600 MG, BID
     Route: 048
     Dates: start: 20170721
  4. KEFLEX [Concomitant]
     Active Substance: CEPHALEXIN
     Indication: PRODUCT USED FOR UNKNOWN INDICATION
     Dosage: UNK
     Dates: start: 20180102
  5. RUBRACA [Suspect]
     Active Substance: RUCAPARIB CAMSYLATE
     Indication: GENE MUTATION
  6. AMOXICILLIN AND CLAVULANATE POTASSIU. [Concomitant]
     Indication: PRODUCT USED FOR UNKNOWN INDICATION
     Dosage: UNK
     Dates: start: 20180102
  7. COMPAZINE                          /00013302/ [Concomitant]
     Active Substance: PROCHLORPERAZINE EDISYLATE
     Indication: PRODUCT USED FOR UNKNOWN INDICATION
     Dosage: UNK
     Dates: start: 20180102
  8. ZOFRAN [Concomitant]
     Active Substance: ONDANSETRON HYDROCHLORIDE
     Indication: PRODUCT USED FOR UNKNOWN INDICATION
     Dosage: UNK
     Dates: start: 20180102
  9. RUBRACA [Suspect]
     Active Substance: RUCAPARIB CAMSYLATE
     Indication: BREAST CANCER
  10. VITAMIN C [Concomitant]
     Active Substance: ASCORBIC ACID
     Indication: PRODUCT USED FOR UNKNOWN INDICATION

REACTIONS (5)
  - Fatigue [Unknown]
  - Somnolence [Unknown]
  - Drug dose omission [Unknown]
  - Dry skin [Not Recovered/Not Resolved]
  - Anaemia [Unknown]
